FAERS Safety Report 9014127 (Version 1)
Quarter: 2013Q1

REPORT INFORMATION
  Report Type: Spontaneous
  Country: CN (occurrence: CN)
  Receive Date: 20130115
  Receipt Date: 20130115
  Transmission Date: 20140127
  Serious: Yes (Other)
  Sender: FDA-Public Use
  Company Number: CN-ABBOTT-13P-035-1034700-00

PATIENT
  Age: 34 Year
  Sex: Male

DRUGS (4)
  1. DEPAKINE CHRONO [Suspect]
     Indication: EPILEPSY
     Route: 048
     Dates: start: 201212, end: 201301
  2. DEPAKINE CHRONO [Suspect]
     Route: 048
     Dates: start: 201301, end: 201301
  3. DEPAKINE CHRONO [Suspect]
     Dosage: 0.5 TABLET DAILY
     Route: 048
     Dates: start: 201301, end: 20130107
  4. PHENOBARBITAL SODIUM/SODIUM BROMIDE [Concomitant]
     Indication: EPILEPSY
     Dates: end: 201212

REACTIONS (8)
  - Skin discolouration [Unknown]
  - Grand mal convulsion [Recovered/Resolved]
  - Convulsion [Unknown]
  - Asthma [Unknown]
  - Dysarthria [Unknown]
  - Movement disorder [Unknown]
  - Tremor [Unknown]
  - Abdominal pain upper [Unknown]
